FAERS Safety Report 23763811 (Version 1)
Quarter: 2024Q2

REPORT INFORMATION
  Report Type: Spontaneous
  Country: US (occurrence: US)
  Receive Date: 20240419
  Receipt Date: 20240419
  Transmission Date: 20240716
  Serious: Yes (Hospitalization, Other)
  Sender: FDA-Public Use
  Company Number: US-VISTAPHARM-2024-US-023122

PATIENT
  Age: 74 Year
  Sex: Male

DRUGS (3)
  1. CARVEDILOL [Suspect]
     Active Substance: CARVEDILOL
     Indication: Cardiac failure
  2. FUROSEMIDE [Concomitant]
     Active Substance: FUROSEMIDE
  3. DIGOXIN [Suspect]
     Active Substance: DIGOXIN
     Indication: Cardiac failure

REACTIONS (1)
  - BRASH syndrome [Recovered/Resolved]
